FAERS Safety Report 11206381 (Version 1)
Quarter: 2015Q2

REPORT INFORMATION
  Report Type: Spontaneous
  Country: US (occurrence: None)
  Receive Date: 20150618
  Receipt Date: 20150618
  Transmission Date: 20150821
  Serious: Yes (Hospitalization, Disabling, Other)
  Sender: FDA-Public Use
  Company Number: None

PATIENT
  Age: 51 Year
  Sex: Female
  Weight: 65.77 kg

DRUGS (1)
  1. LEVAQUIN [Suspect]
     Active Substance: LEVOFLOXACIN
     Indication: SINUSITIS
     Route: 048
     Dates: start: 20100519

REACTIONS (12)
  - Nausea [None]
  - Sinusitis [None]
  - Tendonitis [None]
  - Rotator cuff repair [None]
  - Fall [None]
  - Pain in extremity [None]
  - Abasia [None]
  - Tendon rupture [None]
  - Arthralgia [None]
  - Lumbar spinal stenosis [None]
  - Muscle spasms [None]
  - Bursitis [None]

NARRATIVE: CASE EVENT DATE: 20100607
